FAERS Safety Report 6727561-1 (Version None)
Quarter: 2010Q2

REPORT INFORMATION
  Report Type: 
  Country: None (occurrence: None)
  Receive Date: 20100517
  Receipt Date: 20100512
  Transmission Date: 20101027
  Serious: Yes (Death)
  Sender: FDA-Public Use
  Company Number: PHHY2010US31091

PATIENT

DRUGS (2)
  1. FANAPT [Suspect]
     Indication: SCHIZOPHRENIA
     Dosage: UNK
     Route: 048
     Dates: start: 20100420
  2. FANAPT [Suspect]
     Dosage: 10 MG, BID
     Route: 048

REACTIONS (1)
  - CARDIAC ARREST [None]
